FAERS Safety Report 8524195-3 (Version None)
Quarter: 2012Q3

REPORT INFORMATION
  Report Type: 
  Country: None (occurrence: None)
  Receive Date: 20120720
  Receipt Date: 20120712
  Transmission Date: 20120928
  Serious: Yes (Hospitalization)
  Sender: FDA-Public Use
  Company Number: US-BAYER-2011-087137

PATIENT
  Age: 17 Year
  Sex: Female
  Weight: 63.492 kg

DRUGS (1)
  1. YASMIN [Suspect]
     Indication: CONTRACEPTION
     Dosage: UNK
     Dates: start: 20050223, end: 20060630

REACTIONS (8)
  - FEAR [None]
  - PAIN [None]
  - INJURY [None]
  - PSYCHOLOGICAL TRAUMA [None]
  - INTESTINAL ISCHAEMIA [None]
  - EMOTIONAL DISTRESS [None]
  - MESENTERIC ARTERY THROMBOSIS [None]
  - ANXIETY [None]
